FAERS Safety Report 10376758 (Version 3)
Quarter: 2014Q3

REPORT INFORMATION
  Report Type: Report from Study
  Country: US (occurrence: US)
  Receive Date: 20140811
  Receipt Date: 20140825
  Transmission Date: 20150326
  Serious: Yes (Death, Other)
  Sender: FDA-Public Use
  Company Number: US-009507513-1408USA005496

PATIENT

DRUGS (4)
  1. ENZASTAURIN HYDROCHLORIDE [Suspect]
     Active Substance: ENZASTAURIN HYDROCHLORIDE
     Indication: WALDENSTROM^S MACROGLOBULINAEMIA
     Dosage: 375 MG, TID (DAY 1, CYCLE 1) (8 CYCLES OF 28 DAYS EACH OR UNTIL PROGRESSIVE DISEASE)
     Route: 048
  2. ENZASTAURIN HYDROCHLORIDE [Suspect]
     Active Substance: ENZASTAURIN HYDROCHLORIDE
     Dosage: 250 MG, BID (DAY2, CYCLE 1) (8 CYCLES OF 28 DAYS EACH OR UNTIL PROGRESSIVE DISEASE)
     Route: 048
  3. HEXADROL [Suspect]
     Active Substance: DEXAMETHASONE
     Indication: WALDENSTROM^S MACROGLOBULINAEMIA
     Dosage: 20-40 MG, QD (ON DAYS 1 TO 4, 9 TO 12, AND 17 TO 20 -  28-DAY CYCLE/4 CYCLES)
     Route: 048
  4. HEXADROL [Suspect]
     Active Substance: DEXAMETHASONE
     Dosage: DAY 1-4 (AFTER 4 CYCLES)
     Route: 048

REACTIONS (1)
  - Septic shock [Fatal]
